FAERS Safety Report 19472204 (Version 2)
Quarter: 2021Q3

REPORT INFORMATION
  Report Type: Report from Study
  Country: None (occurrence: US)
  Receive Date: 20210629
  Receipt Date: 20210824
  Transmission Date: 20211014
  Serious: Yes (Hospitalization)
  Sender: FDA-Public Use
  Company Number: US-ABBVIE-21K-163-3965738-00

PATIENT
  Sex: Male

DRUGS (1)
  1. SKYRIZI [Suspect]
     Active Substance: RISANKIZUMAB-RZAA
     Indication: PSORIASIS
     Route: 058
     Dates: end: 2021

REACTIONS (6)
  - Rhinorrhoea [Unknown]
  - Skin infection [Recovering/Resolving]
  - Erythema [Unknown]
  - Papule [Unknown]
  - Skin ulcer [Unknown]
  - Nasal oedema [Unknown]

NARRATIVE: CASE EVENT DATE: 2021
